FAERS Safety Report 4981604-4 (Version None)
Quarter: 2006Q2

REPORT INFORMATION
  Report Type: 
  Country: None (occurrence: None)
  Receive Date: 20060421
  Receipt Date: 20060421
  Transmission Date: 20061013
  Serious: Yes (Hospitalization)
  Sender: FDA-Public Use
  Company Number: None

PATIENT
  Age: 72 Year
  Sex: Male
  Weight: 75.7 kg

DRUGS (2)
  1. ERLOTINIB 150 MG [Suspect]
     Indication: NON-SMALL CELL LUNG CANCER
     Dosage: 150 MG QD (CYCLE #4)
     Dates: start: 20060412
  2. BEVACIZUMAB 15 MG/KG [Suspect]
     Indication: NON-SMALL CELL LUNG CANCER
     Dosage: 1140 Q 21 DAYS
     Dates: start: 20060412

REACTIONS (1)
  - INTESTINAL OBSTRUCTION [None]
